FAERS Safety Report 21883046 (Version 1)
Quarter: 2023Q1

REPORT INFORMATION
  Report Type: Report from Study
  Country: US (occurrence: US)
  Receive Date: 20230119
  Receipt Date: 20230119
  Transmission Date: 20230418
  Serious: Yes (Hospitalization)
  Sender: FDA-Public Use
  Company Number: US-ABBVIE-4275414

PATIENT
  Sex: Female

DRUGS (1)
  1. HUMIRA [Suspect]
     Active Substance: ADALIMUMAB
     Indication: Product used for unknown indication
     Dosage: CF, ?FORM STRENGTH 40 MILLIGRAM
     Route: 058

REACTIONS (3)
  - Failure to thrive [Not Recovered/Not Resolved]
  - Asthenia [Not Recovered/Not Resolved]
  - Urinary tract infection [Not Recovered/Not Resolved]
